FAERS Safety Report 11925311 (Version 1)
Quarter: 2016Q1

REPORT INFORMATION
  Report Type: Spontaneous
  Country: US (occurrence: US)
  Receive Date: 20160118
  Receipt Date: 20160118
  Transmission Date: 20160526
  Serious: Yes (Other)
  Sender: FDA-Public Use
  Company Number: US-009507513-1601USA003490

PATIENT

DRUGS (1)
  1. PROSCAR [Suspect]
     Active Substance: FINASTERIDE
     Dosage: UNK MG, UNK
     Route: 048

REACTIONS (1)
  - Suicidal behaviour [Unknown]
